FAERS Safety Report 21872606 (Version 1)
Quarter: 2023Q1

REPORT INFORMATION
  Report Type: Spontaneous
  Country: CN (occurrence: CN)
  Receive Date: 20230117
  Receipt Date: 20230117
  Transmission Date: 20230418
  Serious: Yes (Hospitalization, Disabling)
  Sender: FDA-Public Use
  Company Number: CN-BAYER-2023P001262

PATIENT
  Age: 66 Year
  Sex: Female

DRUGS (1)
  1. IOPROMIDE [Suspect]
     Active Substance: IOPROMIDE

REACTIONS (13)
  - Contrast encephalopathy [None]
  - Headache [None]
  - Speech disorder [None]
  - Trance [None]
  - Patient uncooperative [None]
  - Pupillary reflex impaired [None]
  - Body temperature increased [None]
  - Loss of consciousness [None]
  - Binocular eye movement disorder [None]
  - Pupillary reflex impaired [None]
  - Sensory loss [None]
  - Muscle spasticity [None]
  - Amnesia [None]
